FAERS Safety Report 7752230-9 (Version None)
Quarter: 2011Q3

REPORT INFORMATION
  Report Type: 
  Country: None (occurrence: None)
  Receive Date: 20110913
  Receipt Date: 20110831
  Transmission Date: 20111222
  Serious: Yes (Other)
  Sender: FDA-Public Use
  Company Number: 2011SP041412

PATIENT
  Age: 40 Year
  Sex: Male

DRUGS (2)
  1. REBETOL [Suspect]
     Indication: HEPATITIS C
     Dates: end: 20110101
  2. PEG-INTRON [Suspect]
     Indication: HEPATITIS C
     Dates: end: 20110101

REACTIONS (2)
  - VIITH NERVE PARALYSIS [None]
  - PARAESTHESIA [None]
